FAERS Safety Report 9306633 (Version 1)
Quarter: 2013Q2

REPORT INFORMATION
  Report Type: Spontaneous
  Country: ES (occurrence: ES)
  Receive Date: 20130523
  Receipt Date: 20130523
  Transmission Date: 20140414
  Serious: Yes (Death)
  Sender: FDA-Public Use
  Company Number: ES-BAYER-2013-064063

PATIENT
  Age: 76 Year
  Sex: Male

DRUGS (14)
  1. ADIRO 100 [Suspect]
     Route: 048
     Dates: start: 20120608, end: 20130325
  2. PRADAXA [Suspect]
     Route: 048
     Dates: start: 201112, end: 20130325
  3. ALOPURINOL [Concomitant]
     Dosage: 100 MG, QD
     Route: 048
     Dates: start: 20130325
  4. SEGURIL [Concomitant]
     Route: 048
     Dates: start: 20110608, end: 20130325
  5. DIGOXIN [DIGOXIN] [Concomitant]
     Dosage: .12 MG, QD
     Route: 048
     Dates: start: 20110608, end: 20130325
  6. EPLERENONE [Concomitant]
     Route: 048
     Dates: end: 20130325
  7. EMCONCOR [Concomitant]
     Dosage: 5 MG, QD
     Route: 048
     Dates: end: 20130325
  8. HYDREA [Concomitant]
     Route: 048
     Dates: end: 20130325
  9. LORMETAZEPAM [Concomitant]
     Route: 048
     Dates: end: 20130325
  10. METAMIZOL [Concomitant]
     Route: 048
     Dates: end: 20130325
  11. OMEPRAZOL [Concomitant]
     Route: 048
     Dates: end: 20130325
  12. PREDNISONE [Concomitant]
     Route: 048
     Dates: end: 20130325
  13. SEROQUEL [Concomitant]
     Dosage: 200 MG, QD
     Route: 048
     Dates: end: 20130325
  14. FESOTERODINE [Concomitant]
     Dosage: 8 MG, QD
     Route: 048
     Dates: end: 20130325

REACTIONS (1)
  - Rectal haemorrhage [Fatal]
